FAERS Safety Report 7624261-0 (Version None)
Quarter: 2011Q3

REPORT INFORMATION
  Report Type: 
  Country: None (occurrence: None)
  Receive Date: 20110720
  Receipt Date: 20091119
  Transmission Date: 20111222
  Serious: Yes (Death, Hospitalization, Other)
  Sender: FDA-Public Use
  Company Number: US-BAYER-200940136NA

PATIENT
  Age: 69 Year
  Sex: Female
  Weight: 79.819 kg

DRUGS (20)
  1. CARDIZEM CD [Concomitant]
     Dosage: 120 MG, QD
     Route: 048
  2. ACETYLSALICYLIC ACID SRT [Concomitant]
     Dosage: 81 MG, UNK
     Route: 048
  3. EPINEPHRINE [Concomitant]
     Dosage: 24 CC/HR
     Route: 042
     Dates: start: 20040917
  4. DIOVAN [Concomitant]
     Dosage: 320 MG, UNK
     Route: 048
  5. NITROGLYCERIN [Concomitant]
     Dosage: 5 MCG
     Route: 042
     Dates: start: 20040917, end: 20040917
  6. PRIMACOR [Concomitant]
     Dosage: 12 CC/HR
     Route: 042
     Dates: start: 20040917
  7. METHYLPREDNISOLONE [Concomitant]
     Dosage: 2 G, UNK
     Route: 042
     Dates: start: 20040917, end: 20040917
  8. CORLOPAM [Concomitant]
     Dosage: 3.4 CC/HR
     Route: 042
     Dates: start: 20040917
  9. ALBUTEROL SULFATE AUTOHALER [Concomitant]
     Dosage: ONE PUFF INHALATION
  10. NOREPINEPHRINE BITARTRATE [Concomitant]
     Dosage: 1 MG/ML, UNK
     Route: 042
     Dates: start: 20040917, end: 20040917
  11. TRASYLOL [Suspect]
     Indication: MITRAL VALVE REPLACEMENT
     Dosage: 200 ML, LOADING DOSE
     Route: 042
     Dates: start: 20040917, end: 20040917
  12. LASIX [Concomitant]
     Dosage: 40 MG, UNK
     Route: 048
  13. TRASYLOL [Suspect]
     Indication: CARDIAC ABLATION
     Dosage: 50 ML/HOUR INFUSION
     Route: 042
     Dates: start: 20040917, end: 20040917
  14. HEPARIN SODIUM [Concomitant]
     Dosage: UNK
     Route: 042
     Dates: start: 20040917
  15. INSULIN [Concomitant]
     Dosage: 40 U, UNK
     Route: 042
     Dates: start: 20040917
  16. RED BLOOD CELLS [Concomitant]
     Dosage: 2 U, UNK
     Route: 042
     Dates: start: 20040917, end: 20040917
  17. LIPITOR [Concomitant]
     Dosage: 20 MG, UNK
     Route: 048
  18. COREG [Concomitant]
     Dosage: UNK
     Route: 048
     Dates: start: 20040903
  19. ANCEF [Concomitant]
     Dosage: 1 G, UNK
     Route: 042
     Dates: start: 20040917, end: 20040917
  20. DOBUTAMINE HCL [Concomitant]
     Dosage: 5MCG.KG
     Route: 042
     Dates: start: 20040917

REACTIONS (6)
  - DEATH [None]
  - INJURY [None]
  - PAIN [None]
  - RENAL FAILURE ACUTE [None]
  - RENAL FAILURE [None]
  - UNEVALUABLE EVENT [None]
